FAERS Safety Report 6387728-1 (Version None)
Quarter: 2009Q4

REPORT INFORMATION
  Report Type: 
  Country: None (occurrence: None)
  Receive Date: 20091005
  Receipt Date: 20090928
  Transmission Date: 20100525
  Serious: Yes (Death, Hospitalization, Other)
  Sender: FDA-Public Use
  Company Number: US-ELI_LILLY_AND_COMPANY-US200802005122

PATIENT
  Sex: Male
  Weight: 67 kg

DRUGS (15)
  1. ALIMTA [Suspect]
     Indication: NON-SMALL CELL LUNG CANCER METASTATIC
     Dosage: 724 MG, OTHER; 1 DOSE
     Route: 042
     Dates: start: 20061025, end: 20061025
  2. VITAMIN B-12 [Concomitant]
     Indication: VITAMIN SUPPLEMENTATION
     Dosage: 1000 UG, UNK
     Dates: start: 20061001
  3. FOLIC ACID [Concomitant]
     Indication: VITAMIN SUPPLEMENTATION
  4. DEXAMETHASONE 0.5MG TAB [Concomitant]
     Dosage: 4 MG, 2/D
     Route: 048
  5. NIFEDIPINE [Concomitant]
     Dosage: 60 MG, DAILY (1/D)
     Route: 048
  6. FERROUS SULFATE TAB [Concomitant]
     Dosage: 325 MG, DAILY (1/D)
     Route: 048
     Dates: start: 20060301
  7. NOVOLOG [Concomitant]
     Dosage: 8 IU, DAILY (1/D)
     Route: 058
     Dates: start: 20060501
  8. VICODIN [Concomitant]
     Dosage: UNK, AS NEEDED
     Route: 048
     Dates: start: 20060901
  9. ZETIA [Concomitant]
     Dosage: 10 MG, DAILY (1/D)
     Route: 048
     Dates: start: 19960101
  10. DIPYRIDAMOLE [Concomitant]
     Dosage: 75 MG, 2/D
     Route: 048
  11. ACTOS [Concomitant]
     Dosage: 15 MG, DAILY (1/D)
     Route: 048
     Dates: start: 20040101
  12. PRAVASTATIN [Concomitant]
     Dosage: 20 MG, DAILY (1/D)
     Route: 048
     Dates: start: 19960101
  13. ATENOLOL [Concomitant]
     Dosage: 50 MG, DAILY (1/D)
     Route: 048
     Dates: start: 19850101
  14. TAMSULOSIN HYDROCHLORIDE [Concomitant]
     Dosage: 0.4 MG, EACH EVENING
     Route: 048
  15. ASPIRIN [Concomitant]
     Dosage: 81 MG, DAILY (1/D)
     Route: 048
     Dates: start: 20060301

REACTIONS (6)
  - ANAEMIA [None]
  - ANAL FISTULA [None]
  - BLOOD CREATININE INCREASED [None]
  - DYSPNOEA EXERTIONAL [None]
  - MALIGNANT NEOPLASM PROGRESSION [None]
  - THROMBOCYTOPENIA [None]
